FAERS Safety Report 9932308 (Version 1)
Quarter: 2014Q1

REPORT INFORMATION
  Report Type: Spontaneous
  Country: JP (occurrence: None)
  Receive Date: 20140226
  Receipt Date: 20140226
  Transmission Date: 20141002
  Serious: Yes (Other)
  Sender: FDA-Public Use
  Company Number: 2014-000362

PATIENT
  Age: 74 Year
  Sex: Female

DRUGS (2)
  1. ACTONEL [Suspect]
     Route: 048
  2. CORTICOSTEROID NOS [Concomitant]

REACTIONS (2)
  - Femur fracture [None]
  - Arthropathy [None]
